FAERS Safety Report 23443053 (Version 7)
Quarter: 2024Q2

REPORT INFORMATION
  Report Type: Spontaneous
  Country: US (occurrence: US)
  Receive Date: 20240125
  Receipt Date: 20240612
  Transmission Date: 20240716
  Serious: Yes (Other)
  Sender: FDA-Public Use
  Company Number: US-PFIZER INC-PV202400009985

PATIENT
  Age: 63 Year
  Sex: Female

DRUGS (2)
  1. IBRANCE [Suspect]
     Active Substance: PALBOCICLIB
     Indication: Neoplasm malignant
     Dosage: UNK
     Dates: end: 20240111
  2. IBRANCE [Suspect]
     Active Substance: PALBOCICLIB
     Dosage: UNK
     Dates: start: 202401

REACTIONS (8)
  - Gastroenteritis radiation [Recovering/Resolving]
  - Abdominal pain [Unknown]
  - Decreased appetite [Recovering/Resolving]
  - Constipation [Unknown]
  - Hot flush [Unknown]
  - Alopecia [Unknown]
  - Amnesia [Unknown]
  - Fatigue [Unknown]
